FAERS Safety Report 25186027 (Version 1)
Quarter: 2025Q2

REPORT INFORMATION
  Report Type: Spontaneous
  Country: US (occurrence: US)
  Receive Date: 20250410
  Receipt Date: 20250410
  Transmission Date: 20250716
  Serious: No
  Sender: INCYTE
  Company Number: US-EVENT-002281

PATIENT

DRUGS (3)
  1. OPZELURA [Suspect]
     Active Substance: RUXOLITINIB PHOSPHATE
     Indication: Dermatitis
     Route: 065
  2. OPZELURA [Suspect]
     Active Substance: RUXOLITINIB PHOSPHATE
     Indication: Chronic graft versus host disease
  3. NIKTIMVO [Concomitant]
     Active Substance: AXATILIMAB-CSFR
     Indication: Chronic graft versus host disease
     Route: 065

REACTIONS (1)
  - Off label use [Unknown]
